FAERS Safety Report 14866757 (Version 1)
Quarter: 2018Q2

REPORT INFORMATION
  Report Type: Spontaneous
  Country: US (occurrence: US)
  Receive Date: 20180508
  Receipt Date: 20180508
  Transmission Date: 20180711
  Serious: No
  Sender: FDA-Public Use
  Company Number: US-ALKERMES INC.-ALK-2018-001104

PATIENT
  Age: 26 Year
  Sex: Female
  Weight: 77.98 kg

DRUGS (2)
  1. REVIA [Concomitant]
     Active Substance: NALTREXONE HYDROCHLORIDE
     Indication: DRUG DEPENDENCE
     Dosage: 50 MG, UNK
     Route: 048
  2. VIVITROL [Suspect]
     Active Substance: NALTREXONE
     Indication: DRUG DEPENDENCE
     Dosage: 380 MG, QMO
     Route: 030
     Dates: start: 201802

REACTIONS (1)
  - Drug screen positive [Unknown]

NARRATIVE: CASE EVENT DATE: 20180213
